FAERS Safety Report 8435898-3 (Version None)
Quarter: 2012Q2

REPORT INFORMATION
  Report Type: 
  Country: None (occurrence: None)
  Receive Date: 20120614
  Receipt Date: 20120604
  Transmission Date: 20120825
  Serious: Yes (Death, Hospitalization, Other)
  Sender: FDA-Public Use
  Company Number: JP-ROCHE-1047721

PATIENT
  Sex: Male

DRUGS (7)
  1. AVASTIN [Suspect]
     Indication: RECTAL CANCER METASTATIC
     Dosage: DOSAGE IS UNCERTAIN.
     Route: 041
     Dates: start: 20100701, end: 20100827
  2. DIOVAN [Concomitant]
     Route: 048
     Dates: start: 20100511
  3. FLUOROURACIL [Concomitant]
     Indication: RECTAL CANCER METASTATIC
     Route: 041
     Dates: start: 20100616, end: 20100827
  4. ACTOS [Concomitant]
     Route: 048
     Dates: start: 20100511
  5. OXALIPLATIN [Concomitant]
     Indication: RECTAL CANCER METASTATIC
     Route: 041
     Dates: start: 20100616, end: 20100827
  6. LEVOLEUCOVORIN CALCIUM [Concomitant]
     Indication: RECTAL CANCER METASTATIC
     Route: 041
     Dates: start: 20100616, end: 20100827
  7. DEXAMETHASONE SODIUM PHOSPHATE [Concomitant]
     Indication: PREMEDICATION
     Dosage: DOSAGE IS UNCERTAIN.
     Route: 065
     Dates: start: 20100616, end: 20100827

REACTIONS (3)
  - GASTROINTESTINAL PERFORATION [None]
  - RECTAL CANCER METASTATIC [None]
  - HAEMOGLOBIN DECREASED [None]
